FAERS Safety Report 7501592-6 (Version None)
Quarter: 2011Q2

REPORT INFORMATION
  Report Type: 
  Country: None (occurrence: None)
  Receive Date: 20110524
  Receipt Date: 20110517
  Transmission Date: 20111010
  Serious: Yes (Other)
  Sender: FDA-Public Use
  Company Number: NL-GENENTECH-319267

PATIENT

DRUGS (4)
  1. LUCENTIS [Suspect]
     Indication: VENOUS OCCLUSION
     Route: 031
  2. AVASTIN [Suspect]
     Indication: VENOUS OCCLUSION
  3. MTX [Concomitant]
     Indication: PRODUCT USED FOR UNKNOWN INDICATION
  4. ASCAL [Concomitant]
     Indication: PRODUCT USED FOR UNKNOWN INDICATION

REACTIONS (1)
  - IIIRD NERVE DISORDER [None]
